FAERS Safety Report 12079978 (Version 1)
Quarter: 2016Q1

REPORT INFORMATION
  Report Type: Spontaneous
  Country: US (occurrence: US)
  Receive Date: 20160216
  Receipt Date: 20160216
  Transmission Date: 20160526
  Serious: Yes (Other)
  Sender: FDA-Public Use
  Company Number: US-GLAXOSMITHKLINE-US2016020095

PATIENT
  Sex: Female

DRUGS (7)
  1. VENTOLIN HFA [Concomitant]
     Active Substance: ALBUTEROL SULFATE
  2. SEREVENT DISKUS [Suspect]
     Active Substance: SALMETEROL XINAFOATE
     Indication: ASTHMA
     Dosage: 1 PUFF(S), BID
     Route: 055
  3. LISINOPRIL. [Concomitant]
     Active Substance: LISINOPRIL
  4. TRAMADOL. [Concomitant]
     Active Substance: TRAMADOL
     Dosage: UNK, PRN
  5. TYLENOL [Concomitant]
     Active Substance: ACETAMINOPHEN
  6. GLIPIZIDE. [Concomitant]
     Active Substance: GLIPIZIDE
  7. PIOGLITAZONE. [Concomitant]
     Active Substance: PIOGLITAZONE

REACTIONS (4)
  - Arthralgia [Not Recovered/Not Resolved]
  - Diabetes mellitus [Not Recovered/Not Resolved]
  - Arthritis [Not Recovered/Not Resolved]
  - Back pain [Not Recovered/Not Resolved]
